FAERS Safety Report 8218808-3 (Version None)
Quarter: 2012Q1

REPORT INFORMATION
  Report Type: 
  Country: None (occurrence: None)
  Receive Date: 20120319
  Receipt Date: 20120313
  Transmission Date: 20120608
  Serious: Yes (Other)
  Sender: FDA-Public Use
  Company Number: PHHY2012IT018952

PATIENT
  Sex: Female

DRUGS (2)
  1. ZOMETA [Suspect]
     Indication: METASTASES TO BONE
     Dosage: 4 MG, CYCLIC
     Route: 042
     Dates: start: 20101020
  2. ZOMETA [Suspect]
     Dosage: 4 MG, CYCLIC
     Route: 042
     Dates: start: 20110612

REACTIONS (2)
  - OSTEONECROSIS OF JAW [None]
  - OSTEOSCLEROSIS [None]
